FAERS Safety Report 8925592 (Version 1)
Quarter: 2012Q4

REPORT INFORMATION
  Report Type: 
  Country: US (occurrence: US)
  Receive Date: 20121126
  Receipt Date: 20121126
  Transmission Date: 20130627
  Serious: Yes (Hospitalization, Other)
  Sender: FDA-Public Use
  Company Number: US-BAYER-2012-121895

PATIENT
  Age: 53 Year
  Sex: Female

DRUGS (8)
  1. YASMIN [Suspect]
     Indication: TUMOUR HAEMORRHAGE
  2. GUAIFENESIN [Concomitant]
     Dosage: One tablet
     Route: 048
  3. SYNTHROID [Concomitant]
     Dosage: 100 ?g, UNK
     Route: 048
  4. HYDROCODONE [Concomitant]
     Dosage: 5/500 mg
     Route: 048
  5. MACROBID [Concomitant]
     Route: 048
  6. MORPHINE [Concomitant]
  7. IBUPROFEN [Concomitant]
     Indication: HEADACHE
  8. OXYGEN [Concomitant]

REACTIONS (3)
  - Pulmonary embolism [None]
  - Cholelithiasis [None]
  - Off label use [None]
